FAERS Safety Report 6255231-5 (Version None)
Quarter: 2009Q2

REPORT INFORMATION
  Report Type: 
  Country: None (occurrence: None)
  Receive Date: 20090630
  Receipt Date: 20090618
  Transmission Date: 20091009
  Serious: Yes (Life-Threatening)
  Sender: FDA-Public Use
  Company Number: GXKR2009IT06686

PATIENT
  Age: 20 Year
  Sex: Female
  Weight: 11 kg

DRUGS (4)
  1. ACETAMINOPHEN AND CODEINE PHOSPHATE [Suspect]
     Indication: SKIN ULCER
     Dosage: 120 MG/DAY
  2. VINCRISTINE [Concomitant]
  3. DACTINOMYCIN [Concomitant]
  4. KETOPROFEN [Concomitant]

REACTIONS (12)
  - ACUTE HEPATIC FAILURE [None]
  - COMA [None]
  - ENCEPHALOPATHY [None]
  - HAEMATEMESIS [None]
  - HEPATOMEGALY [None]
  - INTERNATIONAL NORMALISED RATIO INCREASED [None]
  - MECHANICAL VENTILATION [None]
  - PLATELET COUNT INCREASED [None]
  - PORTAL HYPERTENSION [None]
  - RESPIRATORY FAILURE [None]
  - SKIN HAEMORRHAGE [None]
  - TREMOR [None]
